FAERS Safety Report 5081129-4 (Version None)
Quarter: 2006Q3

REPORT INFORMATION
  Report Type: 
  Country: None (occurrence: None)
  Receive Date: 20060814
  Receipt Date: 20060814
  Transmission Date: 20061208
  Serious: Yes (Hospitalization)
  Sender: FDA-Public Use
  Company Number: None

PATIENT
  Age: 24 Year
  Sex: Male
  Weight: 63.5 kg

DRUGS (8)
  1. LISINOPRIL [Suspect]
     Indication: HYPERLIPIDAEMIA
     Dosage: 40 MG  DAILY PO
     Route: 048
     Dates: start: 20060808, end: 20060809
  2. CLONIDINE HCL [Concomitant]
  3. INTRAPERITONEAL DIALYSIS SOLUTION ESOMEPRZOLE [Concomitant]
  4. LABETALOL HCL [Concomitant]
  5. ACETAMINOPHEN [Concomitant]
  6. GRANISETRON  HCL [Concomitant]
  7. MORPHINE [Concomitant]
  8. EPOETIN ALFA [Concomitant]

REACTIONS (2)
  - CONSTIPATION [None]
  - PANCREATITIS [None]
